FAERS Safety Report 4571666-0 (Version None)
Quarter: 2005Q1

REPORT INFORMATION
  Report Type: 
  Country: None (occurrence: None)
  Receive Date: 20050207
  Receipt Date: 20050125
  Transmission Date: 20050727
  Serious: Yes (Other)
  Sender: FDA-Public Use
  Company Number: FRWYE676031MAR04

PATIENT
  Age: 32 Year
  Sex: Male

DRUGS (5)
  1. ENBREL [Suspect]
     Indication: ANKYLOSING SPONDYLITIS
     Route: 058
     Dates: start: 20031201
  2. ENBREL [Suspect]
     Dosage: UNKNOWN
     Route: 058
  3. SKENAN [Suspect]
     Route: 048
  4. NEURONTIN [Suspect]
     Indication: ARTHRALGIA
     Dosage: UNKNOWN
     Route: 048
     Dates: start: 20031201
  5. MORPHINE [Suspect]

REACTIONS (8)
  - DISTURBANCE IN ATTENTION [None]
  - FATIGUE [None]
  - INSOMNIA [None]
  - KERATITIS HERPETIC [None]
  - MALAISE [None]
  - NAUSEA [None]
  - SOMNOLENCE [None]
  - VOMITING [None]
